FAERS Safety Report 8409549-8 (Version None)
Quarter: 2012Q2

REPORT INFORMATION
  Report Type: 
  Country: None (occurrence: None)
  Receive Date: 20120531
  Receipt Date: 20120531
  Transmission Date: 20120825
  Serious: No
  Sender: FDA-Public Use
  Company Number: None

PATIENT
  Age: 52 Year
  Sex: Female
  Weight: 60 kg

DRUGS (1)
  1. HURRICANE SPRAY PER MD 20% BENZOCAINE BEUTLICH PHARMACEUTICALS [Suspect]
     Indication: ECHOCARDIOGRAM
     Dosage: SPRAY 2 047
     Route: 048
     Dates: start: 20120504

REACTIONS (1)
  - PCO2 INCREASED [None]
